FAERS Safety Report 8873905 (Version 1)
Quarter: 2012Q4

REPORT INFORMATION
  Report Type: 
  Country: NL (occurrence: NL)
  Receive Date: 20121030
  Receipt Date: 20121030
  Transmission Date: 20130627
  Serious: Yes (Hospitalization)
  Sender: FDA-Public Use
  Company Number: PHHY2012NL097454

PATIENT
  Age: 63 Year
  Sex: Male

DRUGS (8)
  1. TOBI PODHALER [Suspect]
     Indication: CHRONIC OBSTRUCTIVE PULMONARY DISEASE
  2. TOBI PODHALER [Suspect]
     Indication: BRONCHIECTASIS
  3. TOBI PODHALER [Suspect]
     Indication: PSEUDOMONAS INFECTION
  4. SERETIDE [Concomitant]
  5. SPIRIVA [Concomitant]
  6. THEOLAIR [Concomitant]
  7. PREDNISON [Concomitant]
  8. FUROSEMIDE [Concomitant]

REACTIONS (1)
  - Dyspnoea [Recovered/Resolved]
